FAERS Safety Report 23094965 (Version 1)
Quarter: 2023Q4

REPORT INFORMATION
  Report Type: Other
  Country: PT (occurrence: PT)
  Receive Date: 20231023
  Receipt Date: 20231023
  Transmission Date: 20240110
  Serious: Yes (Hospitalization, Other)
  Sender: FDA-Public Use
  Company Number: PT-ROCHE-3440736

PATIENT
  Age: 50 Year
  Sex: Female

DRUGS (25)
  1. CLONAZEPAM [Suspect]
     Active Substance: CLONAZEPAM
     Indication: Product used for unknown indication
     Dosage: CLONAZEPAM 2 MG ID
     Route: 065
     Dates: start: 20220622
  2. CLONAZEPAM [Suspect]
     Active Substance: CLONAZEPAM
     Dosage: 2 MG HALF 2 ID
     Route: 065
     Dates: start: 20220818
  3. QUETIAPINE FUMARATE [Suspect]
     Active Substance: QUETIAPINE FUMARATE
     Indication: Product used for unknown indication
     Dosage: THE PATIENT WAS TAKING DIFFERENT MEDICATION AND AT A HIGHER DOSE THAN PRESCRIBED - QUETIAPINE 100 MG
     Route: 065
     Dates: end: 20220707
  4. QUETIAPINE FUMARATE [Suspect]
     Active Substance: QUETIAPINE FUMARATE
     Dosage: INCREASING THE DOSE OF QUETIAPINE TO 5 ID
     Route: 065
     Dates: start: 20220707, end: 20220818
  5. QUETIAPINE FUMARATE [Suspect]
     Active Substance: QUETIAPINE FUMARATE
     Route: 065
     Dates: start: 2022
  6. OLANZAPINE [Suspect]
     Active Substance: OLANZAPINE
     Indication: Product used for unknown indication
     Dosage: THE PATIENT WAS TAKING DIFFERENT MEDICATION AND AT A HIGHER DOSE THAN PRESCRIBED - OLANZAPINE 15 MG
     Route: 065
     Dates: end: 20220707
  7. OLANZAPINE [Suspect]
     Active Substance: OLANZAPINE
     Route: 065
     Dates: start: 20220921
  8. PAROXETINE [Suspect]
     Active Substance: PAROXETINE
     Indication: Product used for unknown indication
     Dosage: PAROXETINE 20 MG ID
     Route: 065
     Dates: start: 20220707, end: 20220818
  9. PAROXETINE [Suspect]
     Active Substance: PAROXETINE
     Dosage: PATIENT WAS TAKING DIFFERENT MEDICATION AND AT A HIGHER DOSE THAN PRESCRIBED - PAROXETINE 20 MG 3 ID
     Route: 065
     Dates: end: 20220707
  10. PAROXETINE [Suspect]
     Active Substance: PAROXETINE
     Route: 065
     Dates: start: 20220818, end: 20220921
  11. GABAPENTIN [Suspect]
     Active Substance: GABAPENTIN
     Indication: Product used for unknown indication
     Dosage: PATIENT WAS TAKING DIFFERENT MEDICATION AND AT A HIGHER DOSE THAN PRESCRIBED - GABAPENTIN 600 MG 3 I
     Route: 065
     Dates: start: 20220622
  12. GABAPENTIN [Suspect]
     Active Substance: GABAPENTIN
     Dosage: MOT RECENT DOSE: 21/SEP/2022?PATIENT WAS TAKING DIFFERENT MEDICATION AND AT A HIGHER DOSE THAN PRESC
     Route: 065
  13. CHLORPROMAZINE [Suspect]
     Active Substance: CHLORPROMAZINE
     Indication: Product used for unknown indication
     Route: 065
     Dates: start: 20220622
  14. RISPERIDONE [Suspect]
     Active Substance: RISPERIDONE
     Indication: Product used for unknown indication
     Dosage: FOR TWENTY DAYS, 1 MG ID
     Route: 065
     Dates: start: 20220818
  15. METFORMIN [Concomitant]
     Active Substance: METFORMIN HYDROCHLORIDE
  16. EMPAGLIFLOZIN\METFORMIN HYDROCHLORIDE [Concomitant]
     Active Substance: EMPAGLIFLOZIN\METFORMIN HYDROCHLORIDE
     Dosage: 12,5/100 MG, BID
  17. GLICLAZIDE [Concomitant]
     Active Substance: GLICLAZIDE
  18. ROSUVASTATIN [Concomitant]
     Active Substance: ROSUVASTATIN
  19. FENOFIBRATE [Concomitant]
     Active Substance: FENOFIBRATE
  20. LEVOTHYROXINE [Concomitant]
     Active Substance: LEVOTHYROXINE
  21. FLUTICASONE PROPIONATE\SALMETEROL XINAFOATE [Concomitant]
     Active Substance: FLUTICASONE PROPIONATE\SALMETEROL XINAFOATE
     Dosage: 250/50 MCG/DOSE, BID
  22. PROPRANOLOL [Concomitant]
     Active Substance: PROPRANOLOL HYDROCHLORIDE
  23. PANTOPRAZOLE [Concomitant]
     Active Substance: PANTOPRAZOLE
  24. FOLIC ACID [Concomitant]
     Active Substance: FOLIC ACID
  25. CHOLECALCIFEROL [Concomitant]
     Active Substance: CHOLECALCIFEROL
     Dosage: 22400 U.I., 1 TABLET EVERY 28 DAYS

REACTIONS (23)
  - Suicidal ideation [Recovered/Resolved]
  - Hallucination, auditory [Recovered/Resolved]
  - Irritability [Unknown]
  - Self-injurious ideation [Recovered/Resolved]
  - Violence-related symptom [Recovered/Resolved]
  - Anxiety [Unknown]
  - Panic attack [Unknown]
  - Fatigue [Unknown]
  - Weight decreased [Unknown]
  - Nightmare [Unknown]
  - Affective disorder [Recovering/Resolving]
  - Depressed mood [Recovering/Resolving]
  - Anhedonia [Recovering/Resolving]
  - Agitation [Unknown]
  - Pseudohallucination [Recovered/Resolved]
  - Middle insomnia [Unknown]
  - Accidental overdose [Unknown]
  - Initial insomnia [Unknown]
  - Somnolence [Unknown]
  - Insomnia [Unknown]
  - Somnolence [Unknown]
  - Treatment noncompliance [Unknown]
  - Intentional product misuse [Unknown]

NARRATIVE: CASE EVENT DATE: 20220101
